FAERS Safety Report 16753138 (Version 3)
Quarter: 2019Q3

REPORT INFORMATION
  Report Type: Spontaneous
  Country: US (occurrence: US)
  Receive Date: 20190829
  Receipt Date: 20190916
  Transmission Date: 20191005
  Serious: No
  Sender: FDA-Public Use
  Company Number: US-GLAXOSMITHKLINE-US2019152154

PATIENT
  Age: 75 Year
  Sex: Female

DRUGS (2)
  1. BENLYSTA [Suspect]
     Active Substance: BELIMUMAB
     Dosage: UNK, WE
     Route: 058
     Dates: start: 20190816
  2. BENLYSTA [Suspect]
     Active Substance: BELIMUMAB
     Indication: SYSTEMIC LUPUS ERYTHEMATOSUS
     Dosage: UNK, WE
     Route: 058
     Dates: start: 20190809

REACTIONS (8)
  - Nonspecific reaction [Unknown]
  - Alopecia [Unknown]
  - Insomnia [Unknown]
  - Myalgia [Unknown]
  - Somnolence [Unknown]
  - Malaise [Unknown]
  - Pruritus [Unknown]
  - Pollakiuria [Unknown]

NARRATIVE: CASE EVENT DATE: 20190819
